FAERS Safety Report 6166590-6 (Version None)
Quarter: 2009Q2

REPORT INFORMATION
  Report Type: 
  Country: None (occurrence: None)
  Receive Date: 20090424
  Receipt Date: 20090417
  Transmission Date: 20091009
  Serious: Yes (Hospitalization)
  Sender: FDA-Public Use
  Company Number: US-ABBOTT-09P-163-0568971-00

PATIENT
  Sex: Male

DRUGS (10)
  1. ZEMPLAR CAPSULES 2MCG [Suspect]
     Indication: HYPERPARATHYROIDISM
     Route: 048
     Dates: start: 20080310
  2. ZEMPLAR CAPSULES 2MCG [Suspect]
     Dates: start: 20050101
  3. SIMVASTIN [Suspect]
     Indication: BLOOD CHOLESTEROL INCREASED
     Route: 048
     Dates: start: 20090101
  4. SPIRONOLACTONE [Concomitant]
     Indication: HYPERTENSION
  5. CLONIDINE [Concomitant]
     Indication: HYPERTENSION
  6. NORVASC [Concomitant]
     Indication: HYPERTENSION
  7. LIPITOR [Concomitant]
     Indication: BLOOD CHOLESTEROL INCREASED
  8. ASPIRIN [Concomitant]
     Indication: PROPHYLAXIS
  9. VITAMIN D [Concomitant]
     Indication: DRUG USE FOR UNKNOWN INDICATION
     Dosage: 50000 UNITS WEEKLY
  10. PROCRIT [Concomitant]
     Indication: RENAL FAILURE
     Route: 050

REACTIONS (3)
  - ANKLE FRACTURE [None]
  - FALL [None]
  - MUSCULOSKELETAL PAIN [None]
